FAERS Safety Report 8017230-2 (Version None)
Quarter: 2012Q1

REPORT INFORMATION
  Report Type: 
  Country: None (occurrence: None)
  Receive Date: 20120102
  Receipt Date: 20111222
  Transmission Date: 20120608
  Serious: Yes (Other)
  Sender: FDA-Public Use
  Company Number: PHHY2011BE111501

PATIENT

DRUGS (5)
  1. CARBAMAZEPINE [Suspect]
     Indication: EPILEPSY
     Dosage: 400 MG, DAILY
     Route: 048
  2. ENBREL [Interacting]
     Indication: PSORIASIS
     Dosage: UNK UKN, UNK
  3. TOPAMAX [Interacting]
     Indication: EPILEPSY
     Dosage: 150 MG, TWICE DAILY
     Route: 048
  4. DEPAKENE [Interacting]
     Indication: EPILEPSY
     Dosage: 300 MG, UNK
  5. LAMICTAL [Interacting]
     Indication: EPILEPSY
     Dosage: 25 MG, TWICE DAILY
     Route: 048

REACTIONS (2)
  - DRUG INTERACTION [None]
  - EPILEPSY [None]
